FAERS Safety Report 7240900-0 (Version None)
Quarter: 2011Q1

REPORT INFORMATION
  Report Type: 
  Country: None (occurrence: None)
  Receive Date: 20110124
  Receipt Date: 20110111
  Transmission Date: 20110831
  Serious: Yes (Other)
  Sender: FDA-Public Use
  Company Number: PHHY2011BR03164

PATIENT
  Sex: Female

DRUGS (3)
  1. DIOCOMB SI [Suspect]
     Indication: HYPERTENSION
     Dosage: 1 DF, QD
     Route: 048
  2. PURAN T4 [Concomitant]
     Indication: HYPOTHYROIDISM
     Dosage: 1 DF, QD
     Route: 048
     Dates: start: 19990101
  3. SOMALGIN CARDIO [Concomitant]
     Dosage: 100 MG

REACTIONS (4)
  - CEREBRAL ISCHAEMIA [None]
  - VIITH NERVE PARALYSIS [None]
  - HEADACHE [None]
  - HYPERTENSION [None]
